FAERS Safety Report 8047727-0 (Version None)
Quarter: 2012Q1

REPORT INFORMATION
  Report Type: 
  Country: None (occurrence: None)
  Receive Date: 20120116
  Receipt Date: 20120109
  Transmission Date: 20120608
  Serious: Yes (Other)
  Sender: FDA-Public Use
  Company Number: DE-TEVA-316478GER

PATIENT
  Age: 65 Year
  Sex: Female

DRUGS (3)
  1. PROPRANOLOL [Suspect]
     Dosage: 60 MILLIGRAM;
     Route: 048
     Dates: start: 20111001
  2. PROPRANOLOL [Suspect]
     Dosage: 30 MILLIGRAM;
     Route: 048
  3. PROPRANOLOL [Suspect]
     Dosage: 15 MILLIGRAM;
     Route: 048
     Dates: end: 20120106

REACTIONS (3)
  - APHASIA [None]
  - DISORIENTATION [None]
  - GAIT DISTURBANCE [None]
